FAERS Safety Report 7246140-3 (Version None)
Quarter: 2011Q1

REPORT INFORMATION
  Report Type: 
  Country: None (occurrence: None)
  Receive Date: 20110126
  Receipt Date: 20110119
  Transmission Date: 20110831
  Serious: Yes (Other)
  Sender: FDA-Public Use
  Company Number: A0908765A

PATIENT
  Sex: Female

DRUGS (1)
  1. PAXIL [Suspect]
     Route: 048
     Dates: start: 19990101, end: 20040901

REACTIONS (12)
  - SUICIDAL IDEATION [None]
  - ALOPECIA [None]
  - ALCOHOL USE [None]
  - NIGHT SWEATS [None]
  - WEIGHT INCREASED [None]
  - WITHDRAWAL SYNDROME [None]
  - TREMOR [None]
  - PARAESTHESIA [None]
  - NIGHTMARE [None]
  - PANIC ATTACK [None]
  - CRYING [None]
  - ANXIETY [None]
